FAERS Safety Report 9344040 (Version 1)
Quarter: 2013Q2

REPORT INFORMATION
  Report Type: Spontaneous
  Country: GB (occurrence: IE)
  Receive Date: 20130612
  Receipt Date: 20130612
  Transmission Date: 20140414
  Serious: Yes (Life-Threatening, Hospitalization, Disabling, Other)
  Sender: FDA-Public Use
  Company Number: IE-BRISTOL-MYERS SQUIBB COMPANY-18987933

PATIENT
  Age: 5 Decade
  Sex: Male

DRUGS (1)
  1. YERVOY [Suspect]
     Dates: start: 201301

REACTIONS (3)
  - Dyspnoea [Recovered/Resolved]
  - Red blood cell count decreased [Recovered/Resolved]
  - Paraesthesia [Recovered/Resolved]
